FAERS Safety Report 12966213 (Version 2)
Quarter: 2016Q4

REPORT INFORMATION
  Report Type: Report from Study
  Country: US (occurrence: US)
  Receive Date: 20161122
  Receipt Date: 20161216
  Transmission Date: 20170207
  Serious: Yes (Hospitalization)
  Sender: FDA-Public Use
  Company Number: US-ACTELION-A-US2016-145827

PATIENT
  Age: 83 Year
  Sex: Female

DRUGS (2)
  1. OPSUMIT [Suspect]
     Active Substance: MACITENTAN
     Indication: PULMONARY ARTERIAL HYPERTENSION
     Dosage: 10 MG, QD
     Route: 048
     Dates: start: 20150407
  2. ADCIRCA [Concomitant]
     Active Substance: TADALAFIL

REACTIONS (10)
  - Syncope [Unknown]
  - Decreased appetite [Unknown]
  - Brain oedema [Unknown]
  - Cystitis [Unknown]
  - Ear infection [Unknown]
  - Fall [Unknown]
  - Dyspnoea exertional [Unknown]
  - Fatigue [Unknown]
  - Dizziness [Unknown]
  - Cardiac failure congestive [Unknown]

NARRATIVE: CASE EVENT DATE: 20161108
